FAERS Safety Report 8875862 (Version 1)
Quarter: 2012Q4

REPORT INFORMATION
  Report Type: 
  Country: US (occurrence: US)
  Receive Date: 20121030
  Receipt Date: 20121030
  Transmission Date: 20130627
  Serious: No
  Sender: FDA-Public Use
  Company Number: US-B.I. PHARMACEUTICALS,INC./RIDGEFIELD-2012-BP-26613BP

PATIENT
  Sex: Male
  Weight: 59 kg

DRUGS (10)
  1. MICARDIS [Suspect]
     Indication: HYPERTENSION
     Dosage: 80 mg
     Route: 048
     Dates: start: 2007
  2. SPIRONOLACTONE [Concomitant]
     Indication: CARDIAC DISORDER
     Dosage: 12.5 mg
     Route: 048
     Dates: start: 2007
  3. KLOR KON [Concomitant]
     Route: 048
     Dates: start: 2007
  4. ATIVAN [Concomitant]
     Indication: NERVOUSNESS
     Route: 048
     Dates: start: 2007
  5. PERFUSIA [Concomitant]
     Indication: PULMONARY HYPERTENSION
     Route: 048
  6. MULTI VITAMIN [Concomitant]
     Route: 048
  7. GINGER [Concomitant]
     Indication: CARDIOVASCULAR INSUFFICIENCY
     Route: 048
  8. TARINE [Concomitant]
     Indication: NERVOUSNESS
     Route: 048
  9. FISH OIL [Concomitant]
     Indication: CARDIAC DISORDER
     Route: 048
  10. COQ10 [Concomitant]
     Route: 048

REACTIONS (4)
  - Hepatic enzyme increased [Not Recovered/Not Resolved]
  - Hypotension [Recovered/Resolved]
  - Hypertension [Recovered/Resolved]
  - Chest discomfort [Recovered/Resolved]
